FAERS Safety Report 24791152 (Version 1)
Quarter: 2024Q4

REPORT INFORMATION
  Report Type: Spontaneous
  Country: GB (occurrence: GB)
  Receive Date: 20241230
  Receipt Date: 20241230
  Transmission Date: 20250115
  Serious: Yes (Other)
  Sender: TEVA
  Company Number: GB-MHRA-EMIS-4970-c85125a6-44ed-4e0f-bc43-d4839be3bb84

PATIENT
  Age: 69 Year
  Sex: Female
  Weight: 75 kg

DRUGS (4)
  1. EZETIMIBE [Suspect]
     Active Substance: EZETIMIBE
     Indication: Product used for unknown indication
     Route: 065
     Dates: start: 20240411, end: 20240425
  2. VENTOLIN [Concomitant]
     Active Substance: ALBUTEROL SULFATE
     Indication: Asthma
     Dosage: VENTOLIN - DRUG DOSAGE TEXT ONE OR TWO PUFFS TO BE INHALED FOUR TIMES A DAY WHEN REQUIRED. IF NEE...
     Route: 055
     Dates: start: 20241209, end: 20241209
  3. Adjuvanted quadrivalent influenza vaccine [Concomitant]
     Indication: Product used for unknown indication
     Dates: start: 20241005, end: 20241117
  4. SPIKEVAX [Concomitant]
     Active Substance: CX-046684
     Indication: Product used for unknown indication
     Dosage: MULTIDOSE VIALS, JN.1 COVID-19 MRNA
     Route: 030
     Dates: start: 20241011, end: 20241011

REACTIONS (1)
  - Gastrointestinal disorder [Recovered/Resolved]

NARRATIVE: CASE EVENT DATE: 20240418
